FAERS Safety Report 9001122 (Version 1)
Quarter: 2013Q1

REPORT INFORMATION
  Report Type: Report from Study
  Country: CA (occurrence: CA)
  Receive Date: 20130107
  Receipt Date: 20130107
  Transmission Date: 20140127
  Serious: Yes (Other)
  Sender: FDA-Public Use
  Company Number: CA-UCBSA-073764

PATIENT
  Age: 42 Year
  Sex: Female

DRUGS (6)
  1. CIMZIA [Suspect]
     Indication: RHEUMATOID ARTHRITIS
     Dosage: ON HOLD
     Route: 058
     Dates: start: 20120215
  2. CIMZIA [Suspect]
     Indication: RHEUMATOID ARTHRITIS
     Route: 058
     Dates: start: 20111208, end: 201202
  3. SOTOLOL [Concomitant]
     Indication: CARDIAC DISORDER
     Route: 048
  4. URSODIOL [Concomitant]
     Indication: BILIARY CIRRHOSIS
     Route: 048
     Dates: start: 200812
  5. GABAPENTIN [Concomitant]
     Indication: NEURALGIA
     Dosage: TID AS NECESSARY
     Route: 048
  6. TYLENOL [Concomitant]
     Indication: PAIN
     Dosage: UNKNOWN DOSE IN MG AS NECESSARY
     Route: 048

REACTIONS (1)
  - Bronchitis [Recovering/Resolving]
